FAERS Safety Report 23892431 (Version 2)
Quarter: 2024Q3

REPORT INFORMATION
  Report Type: Spontaneous
  Country: US (occurrence: US)
  Receive Date: 20240524
  Receipt Date: 20240819
  Transmission Date: 20241017
  Serious: No
  Sender: BIOCON
  Company Number: US-MIMS-BCONMC-4242

PATIENT

DRUGS (2)
  1. INSULIN GLARGINE [Suspect]
     Active Substance: INSULIN GLARGINE
     Indication: Type 1 diabetes mellitus
     Dosage: 48 UNITS/ML, QD
     Route: 058
  2. HEMOLOG [Concomitant]
     Indication: Product used for unknown indication
     Dosage: UNK, UNK

REACTIONS (1)
  - Device difficult to use [Unknown]
